FAERS Safety Report 9981336 (Version 2)
Quarter: 2014Q1

REPORT INFORMATION
  Report Type: Spontaneous
  Country: US (occurrence: US)
  Receive Date: 20140307
  Receipt Date: 20140307
  Transmission Date: 20141002
  Serious: Yes (Other)
  Sender: FDA-Public Use
  Company Number: US-MYLANLABS-2014S1004292

PATIENT
  Age: 43 Year
  Sex: Female
  Weight: 89.7 kg

DRUGS (13)
  1. AMIODARONE HYDROCHLORIDE INJECTION [Suspect]
     Indication: VENTRICULAR TACHYCARDIA
     Route: 042
     Dates: start: 20140221, end: 20140222
  2. ASA [Concomitant]
  3. LIPITOR [Concomitant]
  4. ALBUTEROL [Concomitant]
  5. CAPTOPRIL [Concomitant]
  6. ROCEFIN [Concomitant]
  7. SALINE /00075401/ [Concomitant]
     Dosage: NASAL SPRAY
     Route: 045
  8. LASIX [Concomitant]
  9. NOVOLOG [Concomitant]
  10. MAGNESIUM OXIDE [Concomitant]
  11. METOPROLOL [Concomitant]
  12. POTASSIUM CHLORIDE [Concomitant]
  13. HEPARIN [Concomitant]

REACTIONS (2)
  - Deep vein thrombosis [Not Recovered/Not Resolved]
  - Infusion site extravasation [Not Recovered/Not Resolved]
